FAERS Safety Report 17594210 (Version 2)
Quarter: 2020Q3

REPORT INFORMATION
  Report Type: Spontaneous
  Country: US (occurrence: US)
  Receive Date: 20200327
  Receipt Date: 20200908
  Transmission Date: 20201102
  Serious: Yes (Other)
  Sender: FDA-Public Use
  Company Number: US-ASTRAZENECA-2020SE40884

PATIENT
  Age: 19018 Day
  Sex: Male

DRUGS (49)
  1. NEXIUM [Suspect]
     Active Substance: ESOMEPRAZOLE MAGNESIUM
     Indication: GASTROOESOPHAGEAL REFLUX DISEASE
     Dosage: 40.0MG UNKNOWN
     Route: 048
     Dates: start: 2005, end: 2017
  2. OMEPRAZOLE. [Suspect]
     Active Substance: OMEPRAZOLE
     Indication: GASTROOESOPHAGEAL REFLUX DISEASE
     Dosage: GENERIC
     Route: 048
     Dates: start: 20131223
  3. AMLODIPINE BESYLATE. [Concomitant]
     Active Substance: AMLODIPINE BESYLATE
  4. CLINDAMYCIN. [Concomitant]
     Active Substance: CLINDAMYCIN
  5. LEVOFLOXACIN. [Concomitant]
     Active Substance: LEVOFLOXACIN
  6. PROPRANOLOL [Concomitant]
     Active Substance: PROPRANOLOL HYDROCHLORIDE
  7. ROLAIDS [Concomitant]
     Active Substance: CALCIUM CARBONATE\MAGNESIUM HYDROXIDE
  8. MYLANTA [Concomitant]
     Active Substance: ALUMINUM HYDROXIDE\DIMETHICONE\MAGNESIUM HYDROXIDE
  9. FLUOXETINE [Concomitant]
     Active Substance: FLUOXETINE HYDROCHLORIDE
  10. CHERATUSSIN [Concomitant]
     Active Substance: AMMONIUM CHLORIDE\DEXTROMETHORPHAN\SODIUM CITRATE
  11. PENICILLIN [Concomitant]
     Active Substance: PENICILLIN
  12. TYLENOL [Concomitant]
     Active Substance: ACETAMINOPHEN
     Indication: HEADACHE
  13. PEPTO?BISMOL [Concomitant]
     Active Substance: BISMUTH SUBSALICYLATE
  14. METHYLPREDNISOLONE. [Concomitant]
     Active Substance: METHYLPREDNISOLONE
  15. COLCHICINE. [Concomitant]
     Active Substance: COLCHICINE
  16. HYDROCODONE/ACETAMINOPHEN [Concomitant]
     Active Substance: ACETAMINOPHEN\HYDROCODONE
  17. SERTRALINE [Concomitant]
     Active Substance: SERTRALINE HYDROCHLORIDE
  18. NEO/POLY/HC [Concomitant]
     Active Substance: HYDROCORTISONE\NEOMYCIN\POLYMYXIN B SULFATE
  19. IRBESARTAN. [Concomitant]
     Active Substance: IRBESARTAN
  20. OMEPRAZOLE. [Suspect]
     Active Substance: OMEPRAZOLE
     Indication: GASTROOESOPHAGEAL REFLUX DISEASE
     Dosage: GENERIC
     Route: 065
  21. ASPIRIN. [Concomitant]
     Active Substance: ASPIRIN
     Indication: HYPERTENSION
     Dates: start: 2018
  22. PEPCID AC [Concomitant]
     Active Substance: FAMOTIDINE
  23. BENZONATATE. [Concomitant]
     Active Substance: BENZONATATE
  24. ATORVASTATIN [Concomitant]
     Active Substance: ATORVASTATIN
  25. CYCLOBENZAPRINE. [Concomitant]
     Active Substance: CYCLOBENZAPRINE
  26. TAGAMET [Concomitant]
     Active Substance: CIMETIDINE
  27. PREDNISONE. [Concomitant]
     Active Substance: PREDNISONE
  28. ACETAMINOPHEN/ COD [Concomitant]
  29. SUCRALFATE. [Concomitant]
     Active Substance: SUCRALFATE
  30. PARICALCITOL. [Concomitant]
     Active Substance: PARICALCITOL
  31. GLUCOCORTICOIDS [Concomitant]
     Active Substance: UNSPECIFIED INGREDIENT
  32. NEXIUM [Suspect]
     Active Substance: ESOMEPRAZOLE MAGNESIUM
     Indication: GASTROOESOPHAGEAL REFLUX DISEASE
     Dosage: GENERIC40.0MG UNKNOWN
     Route: 065
     Dates: start: 2015
  33. NEXIUM [Suspect]
     Active Substance: ESOMEPRAZOLE MAGNESIUM
     Indication: GASTROOESOPHAGEAL REFLUX DISEASE
     Dosage: GENERIC40.0MG UNKNOWN
     Route: 048
     Dates: start: 20170310
  34. LISINOPRIL. [Concomitant]
     Active Substance: LISINOPRIL
  35. TRAMADOL. [Concomitant]
     Active Substance: TRAMADOL
  36. CITALOPRAM [Concomitant]
     Active Substance: CITALOPRAM HYDROBROMIDE
  37. NAPROXEN. [Concomitant]
     Active Substance: NAPROXEN
  38. NABUMETONE. [Concomitant]
     Active Substance: NABUMETONE
  39. ACULAR [Concomitant]
     Active Substance: KETOROLAC TROMETHAMINE
  40. ZANTAC [Concomitant]
     Active Substance: RANITIDINE HYDROCHLORIDE
  41. TUMS [Concomitant]
     Active Substance: CALCIUM CARBONATE
  42. LOSARTAN. [Concomitant]
     Active Substance: LOSARTAN
  43. ONDANSETRON [Concomitant]
     Active Substance: ONDANSETRON
  44. ALLOPURINOL. [Concomitant]
     Active Substance: ALLOPURINOL
  45. INDOMETHACIN. [Concomitant]
     Active Substance: INDOMETHACIN
  46. RANITIDINE. [Concomitant]
     Active Substance: RANITIDINE
  47. POLYMYXIN ?B/TRIMETHOPRIMOPHTH [Concomitant]
  48. NITROGLYCERIN. [Concomitant]
     Active Substance: NITROGLYCERIN
  49. LOSARTAN POTASSIUM. [Concomitant]
     Active Substance: LOSARTAN POTASSIUM

REACTIONS (3)
  - Chronic kidney disease [Not Recovered/Not Resolved]
  - End stage renal disease [Unknown]
  - Renal failure [Unknown]

NARRATIVE: CASE EVENT DATE: 20171006
